FAERS Safety Report 4865465-X (Version None)
Quarter: 2005Q4

REPORT INFORMATION
  Report Type: 
  Country: None (occurrence: None)
  Receive Date: 20051223
  Receipt Date: 20051213
  Transmission Date: 20060501
  Serious: Yes (Hospitalization)
  Sender: FDA-Public Use
  Company Number: CH-ROCHE-428290

PATIENT
  Age: 53 Year
  Sex: Male

DRUGS (3)
  1. MEFLOQUINE HCL [Suspect]
     Indication: MALARIA
     Dosage: RECEIVED A TOTAL DOSE OF 1500MG OF MEFLOQUINE OVER 24 HOURS
     Route: 065
  2. HALOFANTRINE [Concomitant]
     Indication: MALARIA
     Dosage: FOR 48 HOURS
  3. PARACETAMOL [Concomitant]

REACTIONS (4)
  - BLOOD PRESSURE DECREASED [None]
  - DIFFUSE ALVEOLAR DAMAGE [None]
  - GENERAL PHYSICAL HEALTH DETERIORATION [None]
  - PULMONARY TOXICITY [None]
